FAERS Safety Report 9929032 (Version 4)
Quarter: 2014Q3

REPORT INFORMATION
  Report Type: Report from Study
  Country: US (occurrence: US)
  Receive Date: 20140227
  Receipt Date: 20140815
  Transmission Date: 20150326
  Serious: Yes (Other)
  Sender: FDA-Public Use
  Company Number: US-BAYER-2014-028220

PATIENT
  Age: 74 Year
  Sex: Female

DRUGS (4)
  1. STIVARGA [Suspect]
     Active Substance: REGORAFENIB
     Indication: COLON CANCER
     Dosage: UNK
     Route: 048
     Dates: start: 20140408
  2. STIVARGA [Suspect]
     Active Substance: REGORAFENIB
     Indication: COLON CANCER
     Dosage: 3 TABLETS DAILY
     Route: 048
     Dates: end: 20140807
  3. STIVARGA [Suspect]
     Active Substance: REGORAFENIB
     Indication: COLON CANCER
     Dosage: 40MG, 4 TABLETS, DAILY
     Route: 048
     Dates: start: 20140217, end: 20140218
  4. STIVARGA [Suspect]
     Active Substance: REGORAFENIB
     Indication: COLON CANCER
     Dosage: 40MG, 4 TABLETS, DAILY
     Route: 048
     Dates: start: 20140224, end: 20140324

REACTIONS (6)
  - Peripheral coldness [Not Recovered/Not Resolved]
  - Blood bilirubin increased [None]
  - Dehydration [Recovered/Resolved]
  - Diarrhoea [Recovered/Resolved]
  - Vomiting [Recovered/Resolved]
  - Laboratory test abnormal [None]

NARRATIVE: CASE EVENT DATE: 20140217
